FAERS Safety Report 19821699 (Version 2)
Quarter: 2021Q4

REPORT INFORMATION
  Report Type: Spontaneous
  Country: CA (occurrence: CA)
  Receive Date: 20210913
  Receipt Date: 20211115
  Transmission Date: 20220303
  Serious: Yes (Other)
  Sender: FDA-Public Use
  Company Number: CA-PFIZER INC-202101138912

PATIENT
  Age: 57 Year
  Sex: Male

DRUGS (5)
  1. ENBREL [Suspect]
     Active Substance: ETANERCEPT
     Indication: Product used for unknown indication
     Dosage: 1 DF
     Route: 065
     Dates: start: 202104, end: 202108
  2. PREDNISONE [Concomitant]
     Active Substance: PREDNISONE
     Dosage: UNK
  3. METFORMIN [Concomitant]
     Active Substance: METFORMIN HYDROCHLORIDE
     Dosage: UNK
  4. PERINDOPRIL ARGININE [Concomitant]
     Active Substance: PERINDOPRIL ARGININE
     Dosage: UNK
  5. LYRICA [Concomitant]
     Active Substance: PREGABALIN
     Dosage: UNK

REACTIONS (9)
  - Anal fissure [Unknown]
  - Condition aggravated [Unknown]
  - Arthritis [Unknown]
  - Erythema nodosum [Unknown]
  - Constipation [Unknown]
  - Diarrhoea [Unknown]
  - Uveitis [Unknown]
  - Drug ineffective [Unknown]
  - Abscess [Unknown]

NARRATIVE: CASE EVENT DATE: 20210101
